FAERS Safety Report 4580112-2 (Version None)
Quarter: 2005Q1

REPORT INFORMATION
  Report Type: 
  Country: None (occurrence: None)
  Receive Date: 20050210
  Receipt Date: 20050204
  Transmission Date: 20050727
  Serious: Yes (Life-Threatening)
  Sender: FDA-Public Use
  Company Number: 2005AP00836

PATIENT

DRUGS (6)
  1. ATENOLOL [Suspect]
     Dosage: 50 MG DAILY PO
     Route: 048
  2. DILTIAZEM HYDROCHLORIDE [Suspect]
     Dosage: 360 MG DAILY PO
     Route: 048
  3. IMDUR [Concomitant]
  4. FRUSEMIDE [Concomitant]
  5. ATORVASTATIN [Concomitant]
  6. CLOPIDOGREL [Concomitant]

REACTIONS (2)
  - BRADYCARDIA [None]
  - CIRCULATORY COLLAPSE [None]
